FAERS Safety Report 9976173 (Version 1)
Quarter: 2014Q1

REPORT INFORMATION
  Report Type: Report from Study
  Country: US (occurrence: US)
  Receive Date: 20140306
  Receipt Date: 20140306
  Transmission Date: 20141002
  Serious: No
  Sender: FDA-Public Use
  Company Number: US-ABBVIE-13P-163-1165509-00

PATIENT
  Age: 21 Year
  Sex: Female

DRUGS (5)
  1. HUMIRA [Suspect]
     Indication: ANKYLOSING SPONDYLITIS
     Dates: start: 20130802
  2. HUMIRA [Suspect]
     Dates: start: 20131001
  3. NUCYNTA [Concomitant]
     Indication: PAIN
  4. BIRTH CONTROL [Concomitant]
     Indication: PRODUCT USED FOR UNKNOWN INDICATION
  5. LEXAPRO [Concomitant]
     Indication: ANXIETY

REACTIONS (9)
  - Feeling hot [Not Recovered/Not Resolved]
  - Thirst [Not Recovered/Not Resolved]
  - Injection site erythema [Not Recovered/Not Resolved]
  - Malaise [Not Recovered/Not Resolved]
  - Kidney infection [Recovered/Resolved]
  - Helicobacter infection [Recovered/Resolved]
  - Gastric ulcer [Not Recovered/Not Resolved]
  - Spider vein [Not Recovered/Not Resolved]
  - Gastrooesophageal reflux disease [Not Recovered/Not Resolved]
